FAERS Safety Report 20653043 (Version 3)
Quarter: 2022Q2

REPORT INFORMATION
  Report Type: Spontaneous
  Country: DE (occurrence: DE)
  Receive Date: 20220330
  Receipt Date: 20220606
  Transmission Date: 20220720
  Serious: Yes (Other)
  Sender: FDA-Public Use
  Company Number: DE-BEH-2022143359

PATIENT
  Sex: Male

DRUGS (3)
  1. PRIVIGEN [Suspect]
     Active Substance: HUMAN IMMUNOGLOBULIN G
     Indication: Peripheral sensory neuropathy
     Dosage: 100 MG OVER 3 DAYS IN 5-WEEK TREATMENT INTERVALS
     Route: 065
  2. PRIVIGEN [Suspect]
     Active Substance: HUMAN IMMUNOGLOBULIN G
     Indication: Monoclonal gammopathy
     Dosage: 100 MILLIGRAM, QD
     Route: 065
     Dates: start: 20220311, end: 20220313
  3. PRIVIGEN [Suspect]
     Active Substance: HUMAN IMMUNOGLOBULIN G
     Indication: Hypergammaglobulinaemia benign monoclonal
     Dosage: 70 GRAM, QD
     Route: 065
     Dates: start: 20220526, end: 20220528

REACTIONS (7)
  - Vaccination failure [Unknown]
  - SARS-CoV-2 test positive [Unknown]
  - COVID-19 [Unknown]
  - Drug interaction [Unknown]
  - No adverse event [Unknown]
  - Off label use [Unknown]
  - COVID-19 [Unknown]
